FAERS Safety Report 13892068 (Version 2)
Quarter: 2017Q3

REPORT INFORMATION
  Report Type: Spontaneous
  Country: US (occurrence: US)
  Receive Date: 20170822
  Receipt Date: 20170915
  Transmission Date: 20171127
  Serious: Yes (Hospitalization)
  Sender: FDA-Public Use
  Company Number: US-BAUSCH-BL-2017-024575

PATIENT
  Age: 59 Year
  Sex: Female

DRUGS (1)
  1. XENAZINE [Suspect]
     Active Substance: TETRABENAZINE
     Indication: DYSKINESIA
     Dosage: TAKING 1 AND 1/2 TABLETS DAILY
     Route: 048
     Dates: start: 20140808

REACTIONS (4)
  - Treatment noncompliance [Unknown]
  - Off label use [Not Recovered/Not Resolved]
  - Hip fracture [Unknown]
  - Drug administration error [Unknown]

NARRATIVE: CASE EVENT DATE: 20140808
